FAERS Safety Report 4822613-5 (Version None)
Quarter: 2005Q4

REPORT INFORMATION
  Report Type: 
  Country: None (occurrence: None)
  Receive Date: 20051108
  Receipt Date: 20050722
  Transmission Date: 20060501
  Serious: Yes (Other)
  Sender: FDA-Public Use
  Company Number: PHBS2005NZ10701

PATIENT
  Age: 57 Year
  Sex: Female

DRUGS (5)
  1. VOLTAREN [Suspect]
     Indication: ARTHROPATHY
     Dosage: 50 MG, TID
     Route: 048
  2. IMOVANE [Concomitant]
     Dosage: 7.5 MG/DAILY
  3. FERROGRAD [Concomitant]
     Dosage: 325 MG/DAILY
  4. LOSEC [Concomitant]
     Dosage: 20 MG/DAILY
  5. LIPEX [Concomitant]

REACTIONS (3)
  - CONNECTIVE TISSUE DISORDER [None]
  - RASH GENERALISED [None]
  - SYSTEMIC LUPUS ERYTHEMATOSUS [None]
